FAERS Safety Report 7900693-8 (Version None)
Quarter: 2011Q4

REPORT INFORMATION
  Report Type: 
  Country: None (occurrence: None)
  Receive Date: 20111108
  Receipt Date: 20111102
  Transmission Date: 20120403
  Serious: Yes (Death, Life-Threatening, Other)
  Sender: FDA-Public Use
  Company Number: US-CELGENEUS-163-21880-11102507

PATIENT
  Sex: Male

DRUGS (1)
  1. REVLIMID [Suspect]
     Indication: MYELODYSPLASTIC SYNDROME
     Dosage: 10 MILLIGRAM
     Route: 048
     Dates: start: 20111013, end: 20111019

REACTIONS (5)
  - FULL BLOOD COUNT DECREASED [None]
  - DYSPNOEA [None]
  - DEATH [None]
  - SYNCOPE [None]
  - MYOCARDIAL INFARCTION [None]
